FAERS Safety Report 12584488 (Version 2)
Quarter: 2016Q3

REPORT INFORMATION
  Report Type: Report from Study
  Country: AU (occurrence: AU)
  Receive Date: 20160722
  Receipt Date: 20160901
  Transmission Date: 20161109
  Serious: Yes (Other)
  Sender: FDA-Public Use
  Company Number: AU-ABBVIE-16K-008-1679493-00

PATIENT
  Sex: Female

DRUGS (2)
  1. INSULIN [Concomitant]
     Active Substance: INSULIN NOS
     Indication: DIABETES MELLITUS
  2. HUMIRA [Suspect]
     Active Substance: ADALIMUMAB
     Indication: PSORIATIC ARTHROPATHY
     Route: 058
     Dates: start: 20160205, end: 20160426

REACTIONS (9)
  - Wound infection [Unknown]
  - Skin abrasion [Unknown]
  - Infection [Unknown]
  - Wound [Not Recovered/Not Resolved]
  - Knee arthroplasty [Unknown]
  - Urinary tract infection [Unknown]
  - Injection site bruising [Unknown]
  - Impaired healing [Not Recovered/Not Resolved]
  - Fall [Unknown]

NARRATIVE: CASE EVENT DATE: 2016
